FAERS Safety Report 4484920-8 (Version None)
Quarter: 2004Q3

REPORT INFORMATION
  Report Type: 
  Country: None (occurrence: None)
  Receive Date: 20040921
  Receipt Date: 20030806
  Transmission Date: 20050211
  Serious: Yes (Hospitalization)
  Sender: FDA-Public Use
  Company Number: 163-20785-03080312

PATIENT
  Age: 39 Year
  Sex: Male

DRUGS (3)
  1. THALOMID [Suspect]
     Indication: MYELOFIBROSIS
     Dosage: 100 MG, DAILY, ORAL
     Route: 048
     Dates: start: 20030530, end: 20030613
  2. COZAAR [Suspect]
  3. ADVIL LIQUI-GELS [Suspect]

REACTIONS (1)
  - RENAL FAILURE ACUTE [None]
